FAERS Safety Report 6524944-X (Version None)
Quarter: 2010Q1

REPORT INFORMATION
  Report Type: 
  Country: None (occurrence: None)
  Receive Date: 20100104
  Receipt Date: 20091221
  Transmission Date: 20100710
  Serious: Yes (Other)
  Sender: FDA-Public Use
  Company Number: PL-PFIZER INC-2009312592

PATIENT
  Age: 6 Year
  Sex: Female

DRUGS (1)
  1. AZITHROMYCIN [Suspect]
     Indication: OTITIS MEDIA ACUTE
     Dosage: 10 MG/KG, 1X/DAY
     Route: 048

REACTIONS (1)
  - DELIRIUM [None]
